FAERS Safety Report 6165636-9 (Version None)
Quarter: 2009Q2

REPORT INFORMATION
  Report Type: 
  Country: None (occurrence: None)
  Receive Date: 20090423
  Receipt Date: 20090413
  Transmission Date: 20091009
  Serious: Yes (Hospitalization)
  Sender: FDA-Public Use
  Company Number: FR-WATSON-2008-00580

PATIENT
  Age: 37 Year
  Sex: Male

DRUGS (1)
  1. MONODOX [Suspect]
     Indication: ACTINOMYCOTIC PULMONARY INFECTION
     Dosage: 200 MG, DAILY X  1.5 MONTHS
     Route: 048
     Dates: start: 20060101, end: 20070101

REACTIONS (1)
  - HEPATITIS [None]
